FAERS Safety Report 7076491-7 (Version None)
Quarter: 2010Q4

REPORT INFORMATION
  Report Type: 
  Country: None (occurrence: None)
  Receive Date: 20101101
  Receipt Date: 20101021
  Transmission Date: 20110411
  Serious: No
  Sender: FDA-Public Use
  Company Number: US-B.I. PHARMACEUTICALS,INC./RIDGEFIELD-2010-BP-11895BP

PATIENT
  Sex: Female

DRUGS (4)
  1. CATAPRES [Suspect]
     Indication: HYPERTENSION
     Dosage: 0.2 MG
     Route: 048
     Dates: start: 20100101
  2. COZAAR [Concomitant]
  3. CARVIDOL [Concomitant]
  4. VITMAINS [Concomitant]

REACTIONS (4)
  - ACTIVITIES OF DAILY LIVING IMPAIRED [None]
  - ASTHENIA [None]
  - BLOOD PRESSURE DECREASED [None]
  - LETHARGY [None]
